FAERS Safety Report 23053311 (Version 1)
Quarter: 2023Q4

REPORT INFORMATION
  Report Type: Report from Study
  Country: US (occurrence: US)
  Receive Date: 20231011
  Receipt Date: 20231011
  Transmission Date: 20240110
  Serious: Yes (Other)
  Sender: FDA-Public Use
  Company Number: US-ABBVIE-5443004

PATIENT
  Sex: Male

DRUGS (1)
  1. BOTOX [Suspect]
     Active Substance: ONABOTULINUMTOXINA
     Indication: Torticollis
     Dosage: TIME INTERVAL: AS NECESSARY
     Route: 065

REACTIONS (10)
  - Osteotomy [Unknown]
  - Post procedural complication [Not Recovered/Not Resolved]
  - Post procedural swelling [Unknown]
  - Muscle contractions involuntary [Unknown]
  - Neuralgia [Unknown]
  - Procedural pain [Not Recovered/Not Resolved]
  - Spinal operation [Unknown]
  - Post procedural complication [Unknown]
  - Prostatic operation [Unknown]
  - Impaired healing [Unknown]
